FAERS Safety Report 24250168 (Version 2)
Quarter: 2025Q2

REPORT INFORMATION
  Report Type: Spontaneous
  Country: NZ (occurrence: NZ)
  Receive Date: 20240826
  Receipt Date: 20250408
  Transmission Date: 20250716
  Serious: Yes (Other)
  Sender: ALEXION PHARMACEUTICALS
  Company Number: 2024A193491

PATIENT

DRUGS (11)
  1. OMEPRAZOLE [Suspect]
     Active Substance: OMEPRAZOLE
     Dosage: MODIFIED RELEASE, PO BD, 3 MONTHS (SUPPLY ON DISCHARGE) BD
  2. CANDESARTAN [Suspect]
     Active Substance: CANDESARTAN
     Dosage: PO NOCTE, 3 MONTHS (S;2PLY OR DIST
     Route: 065
  3. METOPROLOL SUCCINATE [Concomitant]
     Active Substance: METOPROLOL SUCCINATE
     Dosage: MODIFIED RELEASE 47.5MG PO MANE, 3 MONTHS (SUPPLY ON DISCHARGE)
  4. METOPROLOL SUCCINATE [Concomitant]
     Active Substance: METOPROLOL SUCCINATE
     Dosage: REDUCED
  5. ASPIRIN [Concomitant]
     Active Substance: ASPIRIN
     Dosage: ENTERIC-COATED 100MG PO OD, 3 MONTHS (SUPPLY ON DISCHARGE) SWALLOW WHOLE V I TH FOOD
  6. EZETIMIBE [Concomitant]
     Active Substance: EZETIMIBE
     Dosage: 10 MILLIGRAM, QD
     Route: 065
  7. TICAGRELOR [Concomitant]
     Active Substance: TICAGRELOR
     Dosage: 90MG TWICE DAILY FOR THREE MONTHS FROM THE 19TH APRIL
     Route: 065
  8. BENDROFLUMETHIAZIDE [Concomitant]
     Active Substance: BENDROFLUMETHIAZIDE
     Dosage: 2.5 MILLIGRAM, QD
     Route: 065
  9. AMLODIPINE [Concomitant]
     Active Substance: AMLODIPINE BESYLATE
     Route: 065
  10. FLUCLOXACILLIN [Concomitant]
     Active Substance: FLUCLOXACILLIN
     Route: 065
  11. CLOPIDOGREL [Concomitant]
     Active Substance: CLOPIDOGREL BISULFATE
     Dosage: PO OD, 3 MONTHS (SUPPLY ON DISCHARG?.)

REACTIONS (6)
  - Erectile dysfunction [Unknown]
  - Myocardial infarction [Unknown]
  - Vertigo [Unknown]
  - Dizziness [Unknown]
  - Diarrhoea [Unknown]
  - Chest pain [Unknown]
